FAERS Safety Report 9192713 (Version 1)
Quarter: 2013Q1

REPORT INFORMATION
  Report Type: Spontaneous
  Country: US (occurrence: None)
  Receive Date: 20120703
  Receipt Date: 20120703
  Transmission Date: 20140127
  Serious: No
  Sender: FDA-Public Use
  Company Number: PHEH2012US009205

PATIENT
  Age: 37 Year
  Sex: Female
  Weight: 89.8 kg

DRUGS (1)
  1. GILENYA (FTY) CAPSULE [Suspect]
     Indication: MULTIPLE SCLEROSIS
     Route: 048
     Dates: start: 20120423

REACTIONS (4)
  - Nasopharyngitis [None]
  - Musculoskeletal stiffness [None]
  - Musculoskeletal pain [None]
  - Vision blurred [None]
